FAERS Safety Report 24743581 (Version 1)
Quarter: 2024Q4

REPORT INFORMATION
  Report Type: Spontaneous
  Country: ES (occurrence: ES)
  Receive Date: 20241217
  Receipt Date: 20241217
  Transmission Date: 20250115
  Serious: Yes (Hospitalization, Other)
  Sender: PURDUE
  Company Number: ES-TERSERA THERAPEUTICS LLC-2024TRS005803

PATIENT
  Age: 54 Year
  Sex: Female

DRUGS (9)
  1. MORPHINE SULFATE [Suspect]
     Active Substance: MORPHINE SULFATE
     Indication: Pain
     Dosage: 19 MILLILITER, (CONCENTRATION: 2%)
     Route: 038
  2. MORPHINE SULFATE [Suspect]
     Active Substance: MORPHINE SULFATE
     Indication: Pain
     Dosage: 19 MILLILITER, (CONCENTRATION: 2%)
     Route: 038
  3. ZICONOTIDE [Suspect]
     Active Substance: ZICONOTIDE
     Indication: Pain
     Dosage: 0.2 MCG, QD (CONCENTRATION: 100 MCG/DAY0
     Route: 038
  4. ZICONOTIDE [Suspect]
     Active Substance: ZICONOTIDE
     Dosage: 7.5 MCG, QD (CONCENTRATION: 100 MCG/DAY)
     Route: 038
  5. FENTANYL [Suspect]
     Active Substance: FENTANYL
     Indication: Pain
     Dosage: 100 MICROGRAM
     Route: 038
  6. LORMETAZEPAM [Concomitant]
     Active Substance: LORMETAZEPAM
     Indication: Product used for unknown indication
     Dosage: 2 MG AT NIGHT
     Route: 065
  7. LACOSAMIDE [Concomitant]
     Active Substance: LACOSAMIDE
     Indication: Product used for unknown indication
     Dosage: 200 MG, BID (EVERY 12 HOURS)
     Route: 065
  8. LEVOTHYROXINE [Concomitant]
     Active Substance: LEVOTHYROXINE
     Indication: Product used for unknown indication
     Dosage: 50 MICROGRAM,  EVERY MORNING
     Route: 065
  9. METAMIZOLE [Concomitant]
     Active Substance: METAMIZOLE
     Indication: Product used for unknown indication
     Dosage: 575 MG, PRN
     Route: 065

REACTIONS (16)
  - Hallucination, auditory [Recovered/Resolved]
  - Hallucination, olfactory [Recovered/Resolved]
  - Incoherent [Recovered/Resolved]
  - Derailment [Recovered/Resolved]
  - Bradyphrenia [Recovered/Resolved]
  - Confabulation [Recovered/Resolved]
  - Persecutory delusion [Recovered/Resolved]
  - Hallucination, visual [Recovered/Resolved]
  - Hallucination, gustatory [Recovered/Resolved]
  - Gait disturbance [Unknown]
  - Tremor [Recovered/Resolved]
  - Disorientation [Recovered/Resolved]
  - Speech disorder [Recovered/Resolved]
  - Hostility [Recovered/Resolved]
  - Product use issue [Unknown]
  - Off label use [Unknown]
